FAERS Safety Report 12583948 (Version 4)
Quarter: 2016Q4

REPORT INFORMATION
  Report Type: Report from Study
  Country: BR (occurrence: BR)
  Receive Date: 20160722
  Receipt Date: 20161104
  Transmission Date: 20170207
  Serious: Yes (Other)
  Sender: FDA-Public Use
  Company Number: PHHY2016BR098574

PATIENT
  Sex: Female
  Weight: 95 kg

DRUGS (4)
  1. FORASEQ [Suspect]
     Active Substance: BUDESONIDE\FORMOTEROL FUMARATE
     Indication: ASTHMA
     Dosage: 1 DF (BUDESONIDE 400 MCG, FORMOTEROL FUMARATE 12 MCG), Q12H
     Route: 055
  2. VERAPAMIL [Concomitant]
     Active Substance: VERAPAMIL HYDROCHLORIDE
     Indication: CHEST PAIN
     Dosage: 2 DF, QD
     Route: 048
  3. HYDROCHLOROTHIAZIDE. [Concomitant]
     Active Substance: HYDROCHLOROTHIAZIDE
     Indication: HYPERTENSION
     Dosage: 1 DF, QD
     Route: 048
  4. LOSARTAN. [Concomitant]
     Active Substance: LOSARTAN
     Indication: HYPERTENSION
     Dosage: 2 DF, QD
     Route: 048

REACTIONS (15)
  - Chromaturia [Recovered/Resolved]
  - Venous occlusion [Not Recovered/Not Resolved]
  - Abasia [Recovering/Resolving]
  - Neuralgia [Recovering/Resolving]
  - Swelling [Unknown]
  - Nephrolithiasis [Recovered/Resolved]
  - Bone decalcification [Recovering/Resolving]
  - Back disorder [Unknown]
  - Bone disorder [Recovering/Resolving]
  - Peripheral swelling [Recovering/Resolving]
  - Heart rate decreased [Not Recovered/Not Resolved]
  - Spinal disorder [Recovering/Resolving]
  - Renal pain [Recovering/Resolving]
  - Musculoskeletal discomfort [Recovering/Resolving]
  - Arthralgia [Recovering/Resolving]

NARRATIVE: CASE EVENT DATE: 2014
